FAERS Safety Report 7727087-2 (Version None)
Quarter: 2011Q3

REPORT INFORMATION
  Report Type: 
  Country: None (occurrence: None)
  Receive Date: 20110831
  Receipt Date: 20110817
  Transmission Date: 20111222
  Serious: Yes (Hospitalization)
  Sender: FDA-Public Use
  Company Number: 20110605

PATIENT
  Age: 65 Year
  Sex: Female

DRUGS (3)
  1. EPINEPHRINE [Suspect]
     Indication: ARTHROPOD STING
     Dosage: 0.3 MG INTRAMUSCULAR
     Route: 030
  2. RIZATRIPTAN [Suspect]
     Indication: HEADACHE
  3. KETOROLAC TROMETHAMINE [Suspect]
     Indication: HEADACHE
     Dosage: INJECTION NOS

REACTIONS (4)
  - CONFUSIONAL STATE [None]
  - CEREBRAL HAEMORRHAGE [None]
  - BRAIN MIDLINE SHIFT [None]
  - SOMNOLENCE [None]
